FAERS Safety Report 7206225-4 (Version None)
Quarter: 2010Q4

REPORT INFORMATION
  Report Type: 
  Country: None (occurrence: None)
  Receive Date: 20101229
  Receipt Date: 20101229
  Transmission Date: 20110411
  Serious: Yes (Other)
  Sender: FDA-Public Use
  Company Number: None

PATIENT
  Sex: Male
  Weight: 74.8435 kg

DRUGS (2)
  1. OXYCODONE 80MG PURDUE PHARMA [Suspect]
     Indication: ACCIDENT
     Dosage: 2 TABLETS 4X A DAY PO
     Route: 048
     Dates: start: 20040201, end: 20101228
  2. OXYCODONE 20MG PURDUE PHARMA [Suspect]
     Indication: ACCIDENT
     Dosage: 1 TABLET 4X A DAY PO
     Route: 048
     Dates: start: 20051001, end: 20101228

REACTIONS (5)
  - ABDOMINAL PAIN UPPER [None]
  - DRUG INEFFECTIVE [None]
  - HEADACHE [None]
  - HOT FLUSH [None]
  - PRODUCT FORMULATION ISSUE [None]
